FAERS Safety Report 19359274 (Version 1)
Quarter: 2021Q2

REPORT INFORMATION
  Report Type: Spontaneous
  Country: BR (occurrence: BR)
  Receive Date: 20210602
  Receipt Date: 20210602
  Transmission Date: 20210717
  Serious: Yes (Life-Threatening, Hospitalization, Other)
  Sender: FDA-Public Use
  Company Number: BR-SUN PHARMACEUTICAL INDUSTRIES LTD-2021R1-298817

PATIENT
  Age: 7 Year
  Sex: Male

DRUGS (3)
  1. ACETYLSALICYLIC ACID [Suspect]
     Active Substance: ASPIRIN
     Dosage: 5 MG/KG PER DAY
     Route: 048
  2. IVIG [Suspect]
     Active Substance: HUMAN IMMUNOGLOBULIN G
     Indication: MULTISYSTEM INFLAMMATORY SYNDROME IN CHILDREN
     Dosage: 2 G/KG , UNK (OVER 10H)
     Route: 042
  3. ACETYLSALICYLIC ACID [Suspect]
     Active Substance: ASPIRIN
     Indication: ANTIPLATELET THERAPY
     Dosage: 80 MG/KG PER DAY (6/6H)
     Route: 048

REACTIONS (4)
  - Seizure [Recovered/Resolved]
  - Coma [Recovered/Resolved]
  - Reye^s syndrome [Recovering/Resolving]
  - Hepatitis [Recovering/Resolving]
